FAERS Safety Report 23303517 (Version 1)
Quarter: 2023Q4

REPORT INFORMATION
  Report Type: Spontaneous
  Country: GB (occurrence: GB)
  Receive Date: 20231215
  Receipt Date: 20231215
  Transmission Date: 20240109
  Serious: Yes (Other)
  Sender: FDA-Public Use
  Company Number: None

PATIENT

DRUGS (3)
  1. XCOPRI [Suspect]
     Active Substance: CENOBAMATE
     Indication: Product used for unknown indication
     Dosage: 12.5MG ONCE PER NIGHT; (12.5 MG,1 IN 1 D)
     Route: 048
  2. LACOSAMIDE [Concomitant]
     Active Substance: LACOSAMIDE
     Indication: Seizure
     Dosage: UNKNOWN
     Route: 065
     Dates: start: 20201020
  3. LAMOTRIGINE [Concomitant]
     Active Substance: LAMOTRIGINE
     Indication: Tonic convulsion
     Dosage: UNKNOWN
     Route: 065
     Dates: start: 20211020

REACTIONS (2)
  - Seizure [Recovered/Resolved with Sequelae]
  - Feeling cold [Recovered/Resolved with Sequelae]

NARRATIVE: CASE EVENT DATE: 20231130
